FAERS Safety Report 10250595 (Version 1)
Quarter: 2014Q2

REPORT INFORMATION
  Report Type: Spontaneous
  Country: US (occurrence: US)
  Receive Date: 20140620
  Receipt Date: 20140620
  Transmission Date: 20141212
  Serious: Yes (Hospitalization)
  Sender: FDA-Public Use
  Company Number: US-GLAXOSMITHKLINE-A1077767A

PATIENT
  Age: 47 Year
  Sex: Female

DRUGS (2)
  1. ADVAIR HFA [Suspect]
     Indication: ASTHMA
     Route: 065
     Dates: start: 20101115
  2. VENTOLIN [Suspect]
     Indication: ASTHMA
     Dosage: 90MCG UNKNOWN
     Route: 065
     Dates: start: 20100611

REACTIONS (7)
  - Gastric disorder [Unknown]
  - Viral infection [Unknown]
  - Multiple allergies [Unknown]
  - Bronchitis [Unknown]
  - Emphysema [Unknown]
  - Incorrect dose administered [Unknown]
  - Drug dose omission [Unknown]
